FAERS Safety Report 14589657 (Version 1)
Quarter: 2018Q1

REPORT INFORMATION
  Report Type: Report from Study
  Country: US (occurrence: US)
  Receive Date: 20180302
  Receipt Date: 20180302
  Transmission Date: 20180509
  Serious: Yes (Other)
  Sender: FDA-Public Use
  Company Number: US-TEVA-2018-US-863696

PATIENT
  Age: 35 Year
  Sex: Male
  Weight: 85 kg

DRUGS (38)
  1. METHOTREXATE. [Suspect]
     Active Substance: METHOTREXATE
     Route: 042
     Dates: start: 20151022, end: 20151022
  2. TACROLIMUS. [Suspect]
     Active Substance: TACROLIMUS
     Dosage: 90 FEG, PER HOUR (2160 FEGTOTAL DAILY DOSE
     Route: 042
     Dates: start: 20151025
  3. CYCLOPHOSPHAMIDE. [Suspect]
     Active Substance: CYCLOPHOSPHAMIDE
     Indication: IMMUNOSUPPRESSION
     Dosage: 4464 MG/250 ML/ HOUR
     Route: 042
     Dates: start: 20151009, end: 20151010
  4. OXYCODONE [Concomitant]
     Active Substance: OXYCODONE
     Route: 065
     Dates: start: 20151122
  5. DOCUSATE [Concomitant]
     Active Substance: DOCUSATE
     Route: 065
     Dates: start: 20151204
  6. METHOTREXATE. [Suspect]
     Active Substance: METHOTREXATE
     Route: 042
     Dates: start: 20151027, end: 20151027
  7. PREDNISONE. [Suspect]
     Active Substance: PREDNISONE
     Route: 048
     Dates: start: 20151207, end: 20151211
  8. PREDNISONE. [Suspect]
     Active Substance: PREDNISONE
     Route: 048
     Dates: start: 20151212, end: 20151216
  9. TACROLIMUS. [Suspect]
     Active Substance: TACROLIMUS
     Dosage: 90 FEG, PER HOUR (2160 FEGTOTAL DAILY DOSE
     Route: 042
     Dates: start: 20151022
  10. ONDANSETRON [Concomitant]
     Active Substance: ONDANSETRON
     Route: 065
     Dates: start: 20151102, end: 20151204
  11. POSACONAZOLE [Concomitant]
     Active Substance: POSACONAZOLE
     Route: 065
     Dates: start: 20150919
  12. SULFAMETHOXAZOL W/TRIMETOPRIM [Concomitant]
     Active Substance: SULFAMETHOXAZOLE\TRIMETHOPRIM
     Route: 065
     Dates: start: 20151110
  13. PREDNISONE. [Suspect]
     Active Substance: PREDNISONE
     Route: 048
     Dates: start: 20151227
  14. TACROLIMUS. [Suspect]
     Active Substance: TACROLIMUS
     Dosage: 90 FEG, PER HOUR (2160 FEGTOTAL DAILY DOSE
     Route: 042
     Dates: start: 20151101
  15. VALACYCLOVIR [Concomitant]
     Active Substance: VALACYCLOVIR HYDROCHLORIDE
     Route: 065
     Dates: start: 20151119
  16. FLUCONAZOLE. [Concomitant]
     Active Substance: FLUCONAZOLE
     Route: 065
     Dates: start: 20151101, end: 20151118
  17. POTASSIUM CHLORIDE. [Concomitant]
     Active Substance: POTASSIUM CHLORIDE
     Route: 065
     Dates: start: 20151124
  18. PREDNISONE. [Suspect]
     Active Substance: PREDNISONE
     Route: 048
     Dates: start: 20151222, end: 20151226
  19. BOSTON BUTT [Concomitant]
     Route: 001
     Dates: start: 20151021
  20. MAGNESIUM SULF.IPOTASSIUM CHLO.ISODIUM CHLO [Concomitant]
     Route: 065
     Dates: start: 20151102
  21. LORAZEPAM. [Concomitant]
     Active Substance: LORAZEPAM
     Route: 065
     Dates: start: 20151102
  22. METOCLOPRAMIDE. [Concomitant]
     Active Substance: METOCLOPRAMIDE
     Route: 065
     Dates: start: 20151117
  23. PREDNISONE. [Suspect]
     Active Substance: PREDNISONE
     Route: 048
     Dates: start: 20151202, end: 20151206
  24. SENNA [Concomitant]
     Active Substance: SENNA LEAF\SENNOSIDES\SENNOSIDES A AND B
     Route: 065
     Dates: start: 20151204
  25. METHOTREXATE. [Suspect]
     Active Substance: METHOTREXATE
     Indication: PROPHYLAXIS AGAINST GRAFT VERSUS HOST DISEASE
     Route: 042
     Dates: start: 20151017, end: 20151017
  26. METHOTREXATE. [Suspect]
     Active Substance: METHOTREXATE
     Route: 042
     Dates: start: 20151019, end: 20151019
  27. BUSULFAN. [Suspect]
     Active Substance: BUSULFAN
     Indication: IMMUNOSUPPRESSION
     Dosage: 200 ML, EVERY HOUR (300MG TOTAL DAILY DOSE)
     Route: 042
     Dates: start: 20151011, end: 20151014
  28. ACYCLOVIR. [Concomitant]
     Active Substance: ACYCLOVIR
     Route: 065
     Dates: start: 20151031, end: 20151118
  29. URSODIOL. [Concomitant]
     Active Substance: URSODIOL
     Route: 065
     Dates: start: 20150924
  30. MAGNESIUM OXIDE. [Concomitant]
     Active Substance: MAGNESIUM OXIDE
     Route: 065
     Dates: start: 20151201
  31. QVAR [Suspect]
     Active Substance: BECLOMETHASONE DIPROPIONATE
     Route: 065
  32. PREDNISONE. [Suspect]
     Active Substance: PREDNISONE
     Indication: ACUTE GRAFT VERSUS HOST DISEASE IN INTESTINE
     Route: 048
     Dates: start: 20151119, end: 20151201
  33. PREDNISONE. [Suspect]
     Active Substance: PREDNISONE
     Route: 048
     Dates: start: 20151217, end: 20151221
  34. TACROLIMUS. [Suspect]
     Active Substance: TACROLIMUS
     Indication: PROPHYLAXIS AGAINST GRAFT VERSUS HOST DISEASE
     Dosage: 90 FEG, PER HOUR (2160 FEGTOTAL DAILY DOSE
     Route: 042
     Dates: start: 20151015
  35. TACROLIMUS. [Suspect]
     Active Substance: TACROLIMUS
     Dosage: 90 FEG, PER HOUR (2160 FEGTOTAL DAILY DOSE
     Route: 042
     Dates: start: 20151120
  36. HYDROCORTISON [Concomitant]
     Active Substance: HYDROCORTISONE
     Route: 065
     Dates: start: 20151021
  37. CLOTRIMAZOLE. [Concomitant]
     Active Substance: CLOTRIMAZOLE
     Route: 065
     Dates: start: 20151102, end: 20151117
  38. PANTOPRAZOLE [Concomitant]
     Active Substance: PANTOPRAZOLE
     Route: 065
     Dates: start: 20151119

REACTIONS (1)
  - Malignant melanoma [Unknown]

NARRATIVE: CASE EVENT DATE: 20151208
